FAERS Safety Report 7208644-9 (Version None)
Quarter: 2011Q1

REPORT INFORMATION
  Report Type: 
  Country: None (occurrence: None)
  Receive Date: 20110104
  Receipt Date: 20101228
  Transmission Date: 20110831
  Serious: Yes (Hospitalization)
  Sender: FDA-Public Use
  Company Number: FR-ROCHE-750909

PATIENT
  Sex: Female

DRUGS (4)
  1. KYTRIL [Suspect]
     Indication: PREMEDICATION
     Dosage: 3MG/3ML, INJECTABLE SOLUTION
     Route: 042
     Dates: end: 20101112
  2. EMEND [Suspect]
     Indication: PREMEDICATION
     Route: 048
     Dates: start: 20101112, end: 20101112
  3. ELOXATIN [Suspect]
     Indication: OVARIAN CANCER METASTATIC
     Dosage: INFUSION
     Route: 042
     Dates: end: 20101210
  4. METHYLPREDNISOLONE [Suspect]
     Indication: PREMEDICATION
     Route: 042
     Dates: end: 20101112

REACTIONS (2)
  - PRURITUS [None]
  - RASH [None]
